FAERS Safety Report 4555787-4 (Version None)
Quarter: 2005Q1

REPORT INFORMATION
  Report Type: 
  Country: None (occurrence: None)
  Receive Date: 20050118
  Receipt Date: 20040419
  Transmission Date: 20050727
  Serious: Yes (Hospitalization)
  Sender: FDA-Public Use
  Company Number: A001-002-006048

PATIENT
  Age: 78 Year
  Sex: Female
  Weight: 59 kg

DRUGS (17)
  1. ARICEPT [Suspect]
     Dosage: 10 MG, 1 IN 1 D, ORAL
     Route: 048
     Dates: start: 20020309
  2. CELEXA (CITALOPRAMHYDROMBROMIDE) [Concomitant]
  3. CHEWABLE UNICAP (UNICAP) [Concomitant]
  4. SINEMET [Concomitant]
  5. PREVACID [Concomitant]
  6. FERROUS GLUCONATE (FERROUS GLUCONATE) [Concomitant]
  7. ASCORBIC ACID [Concomitant]
  8. NAMENDA [Concomitant]
  9. DIDRONEL [Concomitant]
  10. TUMS (CALCIUM CARBONATE) [Concomitant]
  11. ACETAMINOPHEN [Concomitant]
  12. XALATAN [Concomitant]
  13. ACETAMINOPHEN [Concomitant]
  14. DEBROX (UREA HYDROGEN PEROXIDE) [Concomitant]
  15. LOTRIMIN CREAM (CLOTRIMAZOLE) [Concomitant]
  16. MILK OF MAGNESIA (MAGNESIUM HYDROXIDE) [Concomitant]
  17. DULOCOLAX (BISACODYL) [Concomitant]

REACTIONS (1)
  - GASTROINTESTINAL HAEMORRHAGE [None]
